FAERS Safety Report 23595356 (Version 7)
Quarter: 2025Q3

REPORT INFORMATION
  Report Type: Spontaneous
  Country: CA (occurrence: CA)
  Receive Date: 20240305
  Receipt Date: 20250724
  Transmission Date: 20251021
  Serious: Yes (Hospitalization, Other)
  Sender: CHATTEM
  Company Number: CA-SANOFI US-2021SA407496

PATIENT
  Age: 65 Year
  Sex: Female
  Weight: 69 kg

DRUGS (3)
  1. BISACODYL [Suspect]
     Active Substance: BISACODYL
     Indication: Product used for unknown indication
  2. TRIAMCINOLONE ACETONIDE [Suspect]
     Active Substance: TRIAMCINOLONE ACETONIDE
     Indication: Product used for unknown indication
  3. HYDROCORTISONE [Suspect]
     Active Substance: HYDROCORTISONE
     Indication: Product used for unknown indication
     Route: 065

REACTIONS (8)
  - Macular degeneration [Not Recovered/Not Resolved]
  - Colitis ulcerative [Not Recovered/Not Resolved]
  - Rectal haemorrhage [Unknown]
  - Colitis [Not Recovered/Not Resolved]
  - Haematochezia [Unknown]
  - Therapeutic product effect incomplete [Unknown]
  - Off label use [Unknown]
  - Drug ineffective [Unknown]
